FAERS Safety Report 4830970-9 (Version None)
Quarter: 2005Q4

REPORT INFORMATION
  Report Type: 
  Country: None (occurrence: None)
  Receive Date: 20051114
  Receipt Date: 20051101
  Transmission Date: 20060501
  Serious: Yes (Other)
  Sender: FDA-Public Use
  Company Number: HQWYE351602NOV05

PATIENT
  Sex: Female

DRUGS (1)
  1. PANTOZOL (PANTOPRAZOLE) [Suspect]
     Indication: GASTROINTESTINAL DISORDER

REACTIONS (2)
  - ABORTION SPONTANEOUS [None]
  - DRUG EXPOSURE DURING PREGNANCY [None]
